FAERS Safety Report 17845535 (Version 2)
Quarter: 2020Q3

REPORT INFORMATION
  Report Type: Spontaneous
  Country: US (occurrence: US)
  Receive Date: 20200601
  Receipt Date: 20200921
  Transmission Date: 20201103
  Serious: No
  Sender: FDA-Public Use
  Company Number: US-PFIZER INC-2019563005

PATIENT
  Age: 68 Year
  Sex: Male

DRUGS (1)
  1. INLYTA [Suspect]
     Active Substance: AXITINIB
     Indication: RENAL CANCER
     Dosage: 7 MG (1MG TWICE DAILY, TAKE WITH 5MG TABLET FOR A TOTAL OF 7MG)

REACTIONS (1)
  - Diarrhoea [Recovering/Resolving]
